FAERS Safety Report 6593779-4 (Version None)
Quarter: 2010Q1

REPORT INFORMATION
  Report Type: 
  Country: None (occurrence: None)
  Receive Date: 20100212
  Receipt Date: 20100128
  Transmission Date: 20100710
  Serious: Yes (Hospitalization)
  Sender: FDA-Public Use
  Company Number: UTKAB-09-0561

PATIENT
  Age: 49 Year
  Sex: Female
  Weight: 58 kg

DRUGS (8)
  1. ABRAXANE [Suspect]
     Indication: DRUG USE FOR UNKNOWN INDICATION
     Dates: start: 20091013
  2. HERCEPTIN [Suspect]
     Dates: start: 20091020, end: 20091020
  3. DEXAMETHASONE TAB [Concomitant]
  4. GRANISETRON (GRANISETRON) [Concomitant]
  5. NEUPOGEN [Concomitant]
  6. PYRIDOXINE (PYRIDOXINE) [Concomitant]
  7. CYCLOPHOSPHAMIDE [Concomitant]
  8. DOXORUBICIN HCL [Concomitant]

REACTIONS (8)
  - BODY TEMPERATURE INCREASED [None]
  - DYSPNOEA [None]
  - FLUSHING [None]
  - HYPERSENSITIVITY [None]
  - INFUSION RELATED REACTION [None]
  - PRURITUS [None]
  - RASH MACULO-PAPULAR [None]
  - URTICARIA [None]
